FAERS Safety Report 5113300-7 (Version None)
Quarter: 2006Q3

REPORT INFORMATION
  Report Type: 
  Country: None (occurrence: None)
  Receive Date: 20060920
  Receipt Date: 20060906
  Transmission Date: 20061208
  Serious: Yes (Other)
  Sender: FDA-Public Use
  Company Number: 2006BH013242

PATIENT
  Age: 78 Year
  Sex: Male
  Weight: 69.5 kg

DRUGS (1)
  1. DIANEAL [Suspect]
     Indication: PERITONEAL DIALYSIS
     Dosage: 5 L; IP
     Route: 033

REACTIONS (4)
  - BACTERIAL INFECTION [None]
  - CONFUSIONAL STATE [None]
  - PERITONITIS [None]
  - WHITE BLOOD CELL COUNT DECREASED [None]
